FAERS Safety Report 8193143-0 (Version None)
Quarter: 2012Q1

REPORT INFORMATION
  Report Type: 
  Country: None (occurrence: None)
  Receive Date: 20120308
  Receipt Date: 20120229
  Transmission Date: 20120608
  Serious: Yes (Life-Threatening)
  Sender: FDA-Public Use
  Company Number: FR-CELGENEUS-056-C5013-12030078

PATIENT
  Sex: Female
  Weight: 70 kg

DRUGS (5)
  1. DEXAMETHASONE [Suspect]
     Indication: MULTIPLE MYELOMA
     Dosage: 40 MILLIGRAM
     Route: 065
     Dates: start: 20100421
  2. DEXAMETHASONE [Suspect]
     Dosage: 20 MILLIGRAM
     Route: 065
     Dates: start: 20120111, end: 20120208
  3. LENALIDOMIDE [Suspect]
     Dosage: 15 MILLIGRAM
     Route: 048
     Dates: start: 20120111, end: 20120208
  4. ASPIRIN [Concomitant]
     Dosage: 75 MILLIGRAM
     Route: 048
     Dates: start: 20070301
  5. LENALIDOMIDE [Suspect]
     Indication: MULTIPLE MYELOMA
     Dosage: 25 MILLIGRAM
     Route: 048
     Dates: start: 20100421

REACTIONS (1)
  - SMALL INTESTINE CARCINOMA [None]
